FAERS Safety Report 5679795-5 (Version None)
Quarter: 2008Q1

REPORT INFORMATION
  Report Type: 
  Country: None (occurrence: None)
  Receive Date: 20080321
  Receipt Date: 20080312
  Transmission Date: 20080703
  Serious: Yes (Hospitalization, Other)
  Sender: FDA-Public Use
  Company Number: 2008SP005253

PATIENT
  Age: 70 Year
  Sex: Female

DRUGS (2)
  1. BETAMETHASONE [Suspect]
     Indication: HEPATITIS B
     Dosage: 1.5 MG; QD; PO
     Route: 048
     Dates: start: 20071016, end: 20071018
  2. KOBALNON (TERPRENONE) (TEPRENONE) [Suspect]
     Indication: PROPHYLAXIS
     Dosage: 150 MG; QD; PO
     Route: 048
     Dates: start: 20071016, end: 20071018

REACTIONS (2)
  - ALANINE AMINOTRANSFERASE INCREASED [None]
  - LIVER DISORDER [None]
